FAERS Safety Report 23468727 (Version 1)
Quarter: 2024Q1

REPORT INFORMATION
  Report Type: Report from Study
  Country: US (occurrence: US)
  Receive Date: 20240202
  Receipt Date: 20240202
  Transmission Date: 20240410
  Serious: Yes (Hospitalization)
  Sender: FDA-Public Use
  Company Number: US-JNJFOC-20240166487

PATIENT
  Age: 38 Year
  Sex: Female
  Weight: 108.51 kg

DRUGS (1)
  1. TREMFYA [Suspect]
     Active Substance: GUSELKUMAB
     Indication: Polyarthritis
     Route: 058

REACTIONS (2)
  - Kidney infection [Unknown]
  - Off label use [Unknown]
